FAERS Safety Report 7831479-0 (Version None)
Quarter: 2011Q4

REPORT INFORMATION
  Report Type: 
  Country: None (occurrence: None)
  Receive Date: 20111021
  Receipt Date: 20111021
  Transmission Date: 20120403
  Serious: No
  Sender: FDA-Public Use
  Company Number: None

PATIENT
  Age: 71 Year
  Sex: Male
  Weight: 85.275 kg

DRUGS (1)
  1. AZITHROMYCIN [Suspect]
     Indication: ACUTE SINUSITIS
     Dates: start: 20111015, end: 20111019

REACTIONS (2)
  - MASTICATION DISORDER [None]
  - PAIN IN JAW [None]
